FAERS Safety Report 10502871 (Version 2)
Quarter: 2014Q4

REPORT INFORMATION
  Report Type: Spontaneous
  Country: US (occurrence: US)
  Receive Date: 20141007
  Receipt Date: 20141013
  Transmission Date: 20150528
  Serious: No
  Sender: FDA-Public Use
  Company Number: US-BAYER-2014-147429

PATIENT
  Age: 63 Year
  Sex: Female
  Weight: 72.56 kg

DRUGS (10)
  1. FLEXERIL [Concomitant]
     Active Substance: CYCLOBENZAPRINE HYDROCHLORIDE
  2. OXYCODONE [Concomitant]
     Active Substance: OXYCODONE
  3. CYMBALTA [Concomitant]
     Active Substance: DULOXETINE HYDROCHLORIDE
  4. BENADRYL ALLERGY [DIPHENHYDRAMINE HYDROCHLORIDE] [Concomitant]
  5. ALKA-SELTZER HEARTBURN PLUS GAS RELIEFCHEWS TROPICAL PUNCH [Suspect]
     Active Substance: CALCIUM CARBONATE\DIMETHICONE
     Indication: DYSPEPSIA
     Dosage: 2 DF, TID
     Route: 048
     Dates: start: 20140923
  6. LACOSAMIDE [Concomitant]
     Active Substance: LACOSAMIDE
  7. CLARITIN-D 12 HOUR [Concomitant]
     Active Substance: LORATADINE\PSEUDOEPHEDRINE SULFATE
  8. COUMADIN [Concomitant]
     Active Substance: WARFARIN SODIUM
  9. DEPAKOTE [Concomitant]
     Active Substance: DIVALPROEX SODIUM
  10. VITAMIN D [Concomitant]
     Active Substance: CHOLECALCIFEROL

REACTIONS (6)
  - Constipation [Recovered/Resolved]
  - Inappropriate schedule of drug administration [None]
  - Constipation [Not Recovered/Not Resolved]
  - Faeces hard [Recovered/Resolved]
  - Anal haemorrhage [Recovered/Resolved]
  - Painful defaecation [Recovered/Resolved]

NARRATIVE: CASE EVENT DATE: 201409
